FAERS Safety Report 8264148-6 (Version None)
Quarter: 2012Q2

REPORT INFORMATION
  Report Type: 
  Country: None (occurrence: None)
  Receive Date: 20120406
  Receipt Date: 20120402
  Transmission Date: 20120825
  Serious: Yes (Life-Threatening)
  Sender: FDA-Public Use
  Company Number: IT-AMGEN-ITASP2012016200

PATIENT
  Age: 50 Year
  Sex: Female

DRUGS (5)
  1. XELODA [Suspect]
     Indication: BREAST CANCER
     Dosage: 3500 MG, UNK
     Route: 048
     Dates: start: 20111222, end: 20120104
  2. LEVOTHYROXINE SODIUM [Concomitant]
  3. TAXOTERE [Suspect]
     Indication: BREAST CANCER
     Dosage: 100 MG, QWK
     Route: 042
     Dates: start: 20111222, end: 20111222
  4. ESOMEPRAZOLO DOC GENERICI [Concomitant]
     Dosage: UNK
  5. GRANULOKINE [Suspect]
     Indication: PROPHYLAXIS
     Dosage: 1 DF, UNK
     Route: 058
     Dates: start: 20120103, end: 20120104

REACTIONS (4)
  - STOMATITIS [None]
  - URTICARIA [None]
  - NEUTROPENIA [None]
  - VAGINAL INFLAMMATION [None]
